FAERS Safety Report 24048991 (Version 1)
Quarter: 2024Q3

REPORT INFORMATION
  Report Type: Spontaneous
  Country: US (occurrence: US)
  Receive Date: 20240704
  Receipt Date: 20240704
  Transmission Date: 20241017
  Serious: No
  Sender: ELI LILLY AND CO
  Company Number: US-ELI_LILLY_AND_COMPANY-US202407001287

PATIENT
  Age: 3 Year
  Sex: Female

DRUGS (1)
  1. OLUMIANT [Suspect]
     Active Substance: BARICITINIB
     Indication: Arthropathy
     Dosage: 2 MG, QID
     Route: 048

REACTIONS (2)
  - Off label use [Unknown]
  - Overdose [Unknown]
